FAERS Safety Report 18694429 (Version 1)
Quarter: 2021Q1

REPORT INFORMATION
  Report Type: Spontaneous
  Country: US (occurrence: US)
  Receive Date: 20210104
  Receipt Date: 20210104
  Transmission Date: 20210419
  Serious: Yes (Other)
  Sender: FDA-Public Use
  Company Number: US-ASTRAZENECA-2020SF75856

PATIENT
  Sex: Female

DRUGS (1)
  1. FASENRA [Suspect]
     Active Substance: BENRALIZUMAB
     Dosage: UNKNOWN
     Route: 058

REACTIONS (4)
  - Generalised oedema [Recovering/Resolving]
  - Peripheral swelling [Recovering/Resolving]
  - Drug hypersensitivity [Recovering/Resolving]
  - Pain [Recovering/Resolving]
